FAERS Safety Report 9471010 (Version 1)
Quarter: 2013Q3

REPORT INFORMATION
  Report Type: Spontaneous
  Country: FR (occurrence: FR)
  Receive Date: 20130822
  Receipt Date: 20130822
  Transmission Date: 20140515
  Serious: Yes (Hospitalization, Other)
  Sender: FDA-Public Use
  Company Number: FR-ELI_LILLY_AND_COMPANY-FR201308004708

PATIENT
  Age: 29 Year
  Sex: Male

DRUGS (2)
  1. ZYPREXA [Suspect]
     Indication: ACUTE PSYCHOSIS
     Dosage: 20 MG, QD
     Route: 048
     Dates: start: 20130503, end: 20130513
  2. LOXAPAC [Concomitant]
     Indication: PSYCHOTIC DISORDER
     Dosage: 1 DF, UNKNOWN

REACTIONS (1)
  - Pulmonary embolism [Recovering/Resolving]
